FAERS Safety Report 11362493 (Version 1)
Quarter: 2015Q3

REPORT INFORMATION
  Report Type: Spontaneous
  Country: US (occurrence: US)
  Receive Date: 20150810
  Receipt Date: 20150810
  Transmission Date: 20151125
  Serious: Yes (Other)
  Sender: FDA-Public Use
  Company Number: US-PFIZER INC-2015260620

PATIENT
  Age: 52 Year
  Sex: Male

DRUGS (21)
  1. REGLAN [Concomitant]
     Active Substance: METOCLOPRAMIDE HYDROCHLORIDE
     Dosage: 10 MG, UNK
  2. OXYCONTIN [Concomitant]
     Active Substance: OXYCODONE HYDROCHLORIDE
     Dosage: 20 MG, UNK (T12A 12 HR TABLET)
  3. TARKA [Concomitant]
     Active Substance: TRANDOLAPRIL\VERAPAMIL HYDROCHLORIDE
     Dosage: (2-240-MG)
  4. ADVAIR DISKUS [Concomitant]
     Active Substance: FLUTICASONE PROPIONATE\SALMETEROL XINAFOATE
     Dosage: UNK (250-50 MCG/DOSE AEPB)
  5. WELLBUTRIN SR [Concomitant]
     Active Substance: BUPROPION HYDROCHLORIDE
     Dosage: 150 MG, UNK (12 HR TABLET)
  6. ZOFRAN [Concomitant]
     Active Substance: ONDANSETRON HYDROCHLORIDE
     Dosage: 8 MG, UNK
  7. CARAFATE [Concomitant]
     Active Substance: SUCRALFATE
     Dosage: 1 G, UNK
  8. VIAGRA [Suspect]
     Active Substance: SILDENAFIL CITRATE
     Dosage: 100 MG, AS NEEDED ((PRN MDD 1DOSE))
  9. PROVENTIL [Concomitant]
     Active Substance: ALBUTEROL
     Dosage: UNK ((2.5 MG/3ML) 0.083% NEBULIZER SOLUTION)
  10. ELAVIL [Concomitant]
     Active Substance: AMITRIPTYLINE HYDROCHLORIDE
     Dosage: 50 MG, UNK
  11. ZYBAN [Concomitant]
     Active Substance: BUPROPION HYDROCHLORIDE
     Dosage: 150 MG (12HR TABLET), UNK
  12. ZITHROMAX [Concomitant]
     Active Substance: AZITHROMYCIN DIHYDRATE
     Dosage: 250 MG, UNK
  13. VALIUM [Concomitant]
     Active Substance: DIAZEPAM
     Dosage: 5 MG, UNK
  14. ADVAIR HFA [Concomitant]
     Active Substance: FLUTICASONE PROPIONATE\SALMETEROL XINAFOATE
     Dosage: (FLUTICASONE 115MCG/ACT-SALMETEROL 21MCG/ACT)
  15. PRILOSEC [Concomitant]
     Active Substance: OMEPRAZOLE MAGNESIUM
     Dosage: 20 MG, UNK
  16. PROAIR HFA [Concomitant]
     Active Substance: ALBUTEROL SULFATE
     Dosage: UNK (108 (90 BASE) MCG/ACT INHALER)
  17. COMPAZINE [Concomitant]
     Active Substance: PROCHLORPERAZINE MALEATE
     Dosage: 10 MG, UNK
  18. SPIRIVA [Concomitant]
     Active Substance: TIOTROPIUM BROMIDE MONOHYDRATE
     Dosage: 18 ?G, UNK
  19. CELEXA [Concomitant]
     Active Substance: CITALOPRAM HYDROBROMIDE
     Dosage: 40 MG, UNK
  20. ROXICODONE [Concomitant]
     Active Substance: OXYCODONE HYDROCHLORIDE
     Dosage: 15 MG, UNK
  21. OXYGEN. [Concomitant]
     Active Substance: OXYGEN
     Dosage: UNK

REACTIONS (1)
  - Deafness bilateral [Unknown]
